FAERS Safety Report 7224300-5 (Version None)
Quarter: 2011Q1

REPORT INFORMATION
  Report Type: 
  Country: None (occurrence: None)
  Receive Date: 20110106
  Receipt Date: 20110106
  Transmission Date: 20110831
  Serious: Yes (Hospitalization)
  Sender: FDA-Public Use
  Company Number: None

PATIENT
  Age: 62 Year
  Sex: Male
  Weight: 49.9 kg

DRUGS (5)
  1. COUMADIN [Suspect]
     Indication: DEEP VEIN THROMBOSIS
     Dosage: 1MG MWF PO
     Route: 048
  2. TEMAZEPAM [Concomitant]
  3. MEGACE [Concomitant]
  4. COUMADIN [Suspect]
     Indication: DEEP VEIN THROMBOSIS
     Dosage: 2MG T TH S PO
     Route: 048
  5. PROCHLORPERAZINE [Concomitant]

REACTIONS (6)
  - MELAENA [None]
  - INTERNATIONAL NORMALISED RATIO INCREASED [None]
  - DIZZINESS [None]
  - TACHYCARDIA [None]
  - DUODENAL ULCER HAEMORRHAGE [None]
  - HYPOTENSION [None]
